FAERS Safety Report 15843291 (Version 1)
Quarter: 2019Q1

REPORT INFORMATION
  Report Type: Report from Study
  Country: PT (occurrence: PT)
  Receive Date: 20190118
  Receipt Date: 20190118
  Transmission Date: 20190417
  Serious: Yes (Hospitalization)
  Sender: FDA-Public Use
  Company Number: PT-PFIZER INC-2019022157

PATIENT
  Age: 50 Year
  Sex: Male
  Weight: 66 kg

DRUGS (8)
  1. BLINDED THERAPY [Suspect]
     Active Substance: INVESTIGATIONAL PRODUCT
     Indication: ACUTE GRAFT VERSUS HOST DISEASE
     Dosage: 200 MG, 1X/DAY
     Route: 048
     Dates: start: 20181030, end: 20181211
  2. METHYLPREDNISOLONE SODIUM SUCCINATE. [Suspect]
     Active Substance: METHYLPREDNISOLONE SODIUM SUCCINATE
     Indication: ACUTE GRAFT VERSUS HOST DISEASE
     Dosage: 1000 MG, 1X/DAY
     Route: 042
     Dates: start: 20181028, end: 20181030
  3. METHYLPREDNISOLONE SODIUM SUCCINATE. [Suspect]
     Active Substance: METHYLPREDNISOLONE SODIUM SUCCINATE
     Dosage: UNK
     Route: 042
     Dates: start: 20181103
  4. PREDNISOLONE. [Suspect]
     Active Substance: PREDNISOLONE
     Indication: ACUTE GRAFT VERSUS HOST DISEASE
     Dosage: 75 MG, 2X/DAY
     Route: 048
     Dates: start: 20181103, end: 20181210
  5. VALGANCICLOVIR. [Suspect]
     Active Substance: VALGANCICLOVIR
     Indication: CYTOMEGALOVIRUS INFECTION
     Dosage: UNK
     Dates: start: 20181122
  6. PREDNISOLONE. [Suspect]
     Active Substance: PREDNISOLONE
     Dosage: 60 MG, 2X/DAY
     Route: 048
     Dates: start: 20181211
  7. METHYLPREDNISOLONE SODIUM SUCCINATE. [Suspect]
     Active Substance: METHYLPREDNISOLONE SODIUM SUCCINATE
     Dosage: 500 MG, 1X/DAY
     Route: 042
     Dates: start: 20181101, end: 20181102
  8. CYCLOSPORINE. [Concomitant]
     Active Substance: CYCLOSPORINE
     Dosage: UNK
     Dates: start: 20181016

REACTIONS (1)
  - Febrile neutropenia [Not Recovered/Not Resolved]

NARRATIVE: CASE EVENT DATE: 20181211
